FAERS Safety Report 17346356 (Version 1)
Quarter: 2020Q1

REPORT INFORMATION
  Report Type: Spontaneous
  Country: US (occurrence: US)
  Receive Date: 20200129
  Receipt Date: 20200129
  Transmission Date: 20200409
  Serious: Yes (Hospitalization)
  Sender: FDA-Public Use
  Company Number: None

PATIENT
  Age: 5 Year
  Sex: Female

DRUGS (9)
  1. ZONISAMIDE. [Concomitant]
     Active Substance: ZONISAMIDE
  2. ONFI [Concomitant]
     Active Substance: CLOBAZAM
  3. SYMBICORT [Concomitant]
     Active Substance: BUDESONIDE\FORMOTEROL FUMARATE DIHYDRATE
  4. PULMOZYME [Suspect]
     Active Substance: DORNASE ALFA
     Indication: RESPIRATORY DISORDER
     Route: 055
  5. ALBUTEROL. [Concomitant]
     Active Substance: ALBUTEROL
  6. BACLOFEN. [Concomitant]
     Active Substance: BACLOFEN
  7. CETIRIZINE [Concomitant]
     Active Substance: CETIRIZINE HYDROCHLORIDE
  8. METOCLOPRAM [Concomitant]
     Active Substance: METOCLOPRAMIDE
  9. LEVOCARNITIN [Concomitant]

REACTIONS (1)
  - Respiratory disorder [None]

NARRATIVE: CASE EVENT DATE: 20200128
